FAERS Safety Report 6129914-1 (Version None)
Quarter: 2009Q1

REPORT INFORMATION
  Report Type: 
  Country: None (occurrence: None)
  Receive Date: 20090323
  Receipt Date: 20090323
  Transmission Date: 20090719
  Serious: Yes (Life-Threatening, Hospitalization, Disabling, Other)
  Sender: FDA-Public Use
  Company Number: None

PATIENT
  Age: 71 Year
  Sex: Male
  Weight: 86.1834 kg

DRUGS (1)
  1. CELEBREX [Suspect]

REACTIONS (5)
  - COLITIS [None]
  - GASTROINTESTINAL DISORDER [None]
  - PROCEDURAL COMPLICATION [None]
  - RECTAL HAEMORRHAGE [None]
  - SLEEP DISORDER [None]
